FAERS Safety Report 5611579-6 (Version None)
Quarter: 2008Q1

REPORT INFORMATION
  Report Type: 
  Country: None (occurrence: None)
  Receive Date: 20080201
  Receipt Date: 20080109
  Transmission Date: 20080703
  Serious: No
  Sender: FDA-Public Use
  Company Number: US-BOEHRINGER INGELHEIM GMBH, GERMANY-2008-BP-00435BP

PATIENT
  Sex: Female

DRUGS (19)
  1. SPIRIVA [Suspect]
     Indication: CHRONIC OBSTRUCTIVE PULMONARY DISEASE
     Route: 055
     Dates: start: 20070101
  2. ALBUTEROL [Concomitant]
  3. ALBUTEROL [Concomitant]
  4. ALBUTEROL [Concomitant]
  5. ALBUTEROL [Concomitant]
  6. ALBUTEROL [Concomitant]
  7. ALBUTEROL [Concomitant]
  8. ALBUTEROL [Concomitant]
  9. ALBUTEROL [Concomitant]
  10. ALBUTEROL [Concomitant]
  11. ALBUTEROL [Concomitant]
  12. LOPRESSOR [Concomitant]
  13. LASIX [Concomitant]
  14. AMLODIPINE [Concomitant]
  15. ISORBIDE [Concomitant]
  16. PLAVIX [Concomitant]
  17. POTASSIUM CHLORIDE [Concomitant]
  18. ATIVAN [Concomitant]
  19. ATIVAN [Concomitant]

REACTIONS (2)
  - EYE SWELLING [None]
  - PRURITUS [None]
